FAERS Safety Report 14704267 (Version 1)
Quarter: 2018Q2

REPORT INFORMATION
  Report Type: Spontaneous
  Country: US (occurrence: US)
  Receive Date: 20180402
  Receipt Date: 20180402
  Transmission Date: 20180711
  Serious: No
  Sender: FDA-Public Use
  Company Number: US-ALLERGAN-1761143US

PATIENT
  Sex: Male

DRUGS (1)
  1. DELZICOL [Suspect]
     Active Substance: MESALAMINE
     Indication: COLITIS ULCERATIVE
     Dosage: 1200 MG, TID
     Route: 065

REACTIONS (4)
  - Incorrect dose administered [Unknown]
  - Abdominal discomfort [Unknown]
  - Nausea [Unknown]
  - Abdominal pain [Unknown]
